FAERS Safety Report 4685976-X (Version None)
Quarter: 2005Q2

REPORT INFORMATION
  Report Type: 
  Country: None (occurrence: None)
  Receive Date: 20050607
  Receipt Date: 20050607
  Transmission Date: 20051028
  Serious: Yes (Life-Threatening, Hospitalization, Disabling, Other)
  Sender: FDA-Public Use
  Company Number: None

PATIENT
  Age: 47 Month
  Sex: Male
  Weight: 14.0615 kg

DRUGS (1)
  1. ELIDEL [Suspect]
     Indication: ECZEMA
     Dosage: AM     PM    TOPICAL
     Route: 061

REACTIONS (4)
  - DEAFNESS [None]
  - DIFFICULTY IN WALKING [None]
  - HEPATIC NEOPLASM MALIGNANT [None]
  - IMMUNOSUPPRESSION [None]
